FAERS Safety Report 21789538 (Version 2)
Quarter: 2022Q4

REPORT INFORMATION
  Report Type: Spontaneous
  Country: US (occurrence: US)
  Receive Date: 20221228
  Receipt Date: 20221229
  Transmission Date: 20230112
  Serious: No
  Sender: FDA-Public Use
  Company Number: US-GLAXOSMITHKLINE-USCH2022051898

PATIENT

DRUGS (1)
  1. VOLTAREN [Suspect]
     Active Substance: DICLOFENAC SODIUM
     Indication: Product used for unknown indication
     Dosage: UNK (1 %)
     Route: 065
     Dates: start: 20221221

REACTIONS (1)
  - Dry skin [Unknown]

NARRATIVE: CASE EVENT DATE: 20221221
